FAERS Safety Report 18309705 (Version 2)
Quarter: 2021Q4

REPORT INFORMATION
  Report Type: Spontaneous
  Country: US (occurrence: US)
  Receive Date: 20200925
  Receipt Date: 20211021
  Transmission Date: 20220303
  Serious: Yes (Death, Other)
  Sender: FDA-Public Use
  Company Number: US-SAARTEMIS-SAC202009210072

PATIENT
  Age: 10 Year
  Sex: Female

DRUGS (2)
  1. ZANTAC [Suspect]
     Active Substance: RANITIDINE HYDROCHLORIDE
     Indication: Dyspepsia
     Dosage: UNK, QD
     Dates: start: 199001, end: 200301
  2. ZANTAC [Suspect]
     Active Substance: RANITIDINE HYDROCHLORIDE
     Indication: Gastrooesophageal reflux disease

REACTIONS (5)
  - Ovarian cancer stage IV [Fatal]
  - Gastrointestinal carcinoma [Fatal]
  - Lung carcinoma cell type unspecified stage IV [Fatal]
  - Uterine cancer [Fatal]
  - Mesothelioma [Unknown]

NARRATIVE: CASE EVENT DATE: 20080901
